FAERS Safety Report 8561264-6 (Version None)
Quarter: 2012Q3

REPORT INFORMATION
  Report Type: 
  Country: None (occurrence: None)
  Receive Date: 20120802
  Receipt Date: 20120625
  Transmission Date: 20120928
  Serious: No
  Sender: FDA-Public Use
  Company Number: US-ASTRAZENECA-2012SE31990

PATIENT
  Age: 62 Year
  Sex: Female
  Weight: 76.2 kg

DRUGS (11)
  1. NEXIUM [Suspect]
     Route: 048
  2. SUCRALFATE [Concomitant]
  3. SEROQUEL [Suspect]
     Route: 048
  4. TOPIRAMATE [Concomitant]
  5. FUROSEMIDE [Concomitant]
  6. LOVASTATIN [Concomitant]
  7. FLUOXETINE HCL [Concomitant]
  8. SYMBICORT [Suspect]
     Indication: CHRONIC OBSTRUCTIVE PULMONARY DISEASE
     Dosage: 160/4.5 MCG, 2 PUFFS TWICE DAILY
     Route: 055
  9. WARFARIN SODIUM [Concomitant]
  10. CLONAZEPAM [Concomitant]
  11. HYDROCODONE [Concomitant]

REACTIONS (4)
  - HIATUS HERNIA [None]
  - INTENTIONAL DRUG MISUSE [None]
  - DYSPEPSIA [None]
  - PAIN [None]
